FAERS Safety Report 8105899-3 (Version None)
Quarter: 2012Q1

REPORT INFORMATION
  Report Type: 
  Country: None (occurrence: None)
  Receive Date: 20120202
  Receipt Date: 20120123
  Transmission Date: 20120608
  Serious: No
  Sender: FDA-Public Use
  Company Number: US-BIOGENIDEC-2012BI002106

PATIENT
  Sex: Female

DRUGS (1)
  1. TYSABRI [Suspect]
     Indication: MULTIPLE SCLEROSIS
     Route: 042
     Dates: start: 20111215

REACTIONS (14)
  - ARTHRITIS [None]
  - EYE PAIN [None]
  - URINARY TRACT INFECTION [None]
  - SWELLING FACE [None]
  - FEAR [None]
  - CYSTITIS [None]
  - JOINT SWELLING [None]
  - FALL [None]
  - BACK PAIN [None]
  - IRRITABILITY [None]
  - ESCHERICHIA INFECTION [None]
  - FATIGUE [None]
  - LOCAL SWELLING [None]
  - BACK INJURY [None]
